FAERS Safety Report 10210693 (Version 2)
Quarter: 2014Q2

REPORT INFORMATION
  Report Type: Spontaneous
  Country: US (occurrence: US)
  Receive Date: 20140602
  Receipt Date: 20140602
  Transmission Date: 20141212
  Serious: Yes (Death, Life-Threatening, Hospitalization)
  Sender: FDA-Public Use
  Company Number: US-ACTELION-A-NJ2014-98182

PATIENT
  Age: 79 Year
  Sex: Female

DRUGS (3)
  1. TRACLEER [Suspect]
     Indication: PULMONARY ARTERIAL HYPERTENSION
     Dosage: 62.5 MG, BID
     Route: 048
     Dates: start: 201301, end: 20140405
  2. TRACLEER [Suspect]
     Dosage: 31.25 MG, BID
     Route: 048
     Dates: start: 201210, end: 201301
  3. SILDENAFIL [Concomitant]

REACTIONS (6)
  - Pulmonary arterial hypertension [Fatal]
  - Disease progression [Fatal]
  - Dyspnoea [Fatal]
  - Asthenia [Fatal]
  - Right ventricular failure [Not Recovered/Not Resolved]
  - Condition aggravated [Not Recovered/Not Resolved]
